FAERS Safety Report 12224991 (Version 1)
Quarter: 2016Q1

REPORT INFORMATION
  Report Type: Spontaneous
  Country: DE (occurrence: DE)
  Receive Date: 20160331
  Receipt Date: 20160331
  Transmission Date: 20160526
  Serious: Yes (Congenital Anomaly, Other)
  Sender: FDA-Public Use
  Company Number: DE-ABBVIE-16K-062-1591226-00

PATIENT
  Sex: Male
  Weight: 3.91 kg

DRUGS (6)
  1. LEVOTHYROXINE. [Suspect]
     Active Substance: LEVOTHYROXINE
     Indication: MATERNAL EXPOSURE TIMING UNSPECIFIED
     Route: 064
  2. METOPROLOL. [Suspect]
     Active Substance: METOPROLOL
     Indication: MATERNAL EXPOSURE TIMING UNSPECIFIED
     Route: 064
  3. CLOMIFENE [Suspect]
     Active Substance: CLOMIPHENE
     Indication: MATERNAL EXPOSURE TIMING UNSPECIFIED
     Route: 064
  4. HUMIRA [Suspect]
     Active Substance: ADALIMUMAB
     Indication: MATERNAL EXPOSURE TIMING UNSPECIFIED
     Dosage: FIRST TRIMESTER; 0 TO 4 GESTATIONAL WEEK
     Route: 064
  5. DOPEGYT [Suspect]
     Active Substance: METHYLDOPA
     Indication: MATERNAL EXPOSURE TIMING UNSPECIFIED
     Route: 064
  6. ADALAT [Suspect]
     Active Substance: NIFEDIPINE
     Indication: MATERNAL EXPOSURE TIMING UNSPECIFIED
     Route: 064

REACTIONS (4)
  - Foetal heart rate deceleration abnormality [Unknown]
  - Naevus flammeus [Not Recovered/Not Resolved]
  - Foetal exposure during pregnancy [Unknown]
  - Congenital musculoskeletal anomaly [Unknown]

NARRATIVE: CASE EVENT DATE: 20151207
